FAERS Safety Report 9166994 (Version 1)
Quarter: 2013Q1

REPORT INFORMATION
  Report Type: Spontaneous
  Country: SI (occurrence: SI)
  Receive Date: 20130317
  Receipt Date: 20130317
  Transmission Date: 20140127
  Serious: Yes (Other)
  Sender: FDA-Public Use
  Company Number: SI-TEVA-391014ISR

PATIENT
  Age: 85 Year
  Sex: Female

DRUGS (8)
  1. RISSET [Suspect]
     Indication: DELIRIUM
     Dosage: 1 MILLIGRAM DAILY;
     Route: 048
     Dates: start: 20130123, end: 20130127
  2. HALOPERIDOL [Concomitant]
     Route: 058
     Dates: start: 20130122, end: 20130122
  3. AURORIX 150 MG [Concomitant]
     Indication: DEPRESSION
     Dosage: 300 MILLIGRAM DAILY;
     Dates: start: 20130114, end: 20130120
  4. AURORIX 150 MG [Concomitant]
     Dosage: 300 MILLIGRAM DAILY;
     Dates: start: 20130123, end: 20130208
  5. VALDOXAN 25 MG [Concomitant]
     Indication: DEPRESSION
     Dosage: 1 DOSAGE FORMS DAILY;
     Dates: start: 20130123, end: 20130128
  6. OLANZAPINE [Concomitant]
     Indication: HALLUCINATION
     Dosage: 2.5 MILLIGRAM DAILY; IN THE EVENINGS
     Dates: start: 20130129
  7. AMLOPINE [Concomitant]
     Dates: start: 20130202
  8. BLOXAN [Concomitant]
     Dosage: 50 MILLIGRAM DAILY;
     Dates: start: 20130202

REACTIONS (8)
  - Extrapyramidal disorder [Recovered/Resolved]
  - Mobility decreased [Recovered/Resolved]
  - Decubitus ulcer [Unknown]
  - Confusional state [Recovered/Resolved]
  - Restlessness [Unknown]
  - Orthostatic hypotension [Unknown]
  - Hallucination [Recovered/Resolved]
  - Insomnia [Recovered/Resolved]
